FAERS Safety Report 4973968-2 (Version None)
Quarter: 2006Q2

REPORT INFORMATION
  Report Type: 
  Country: None (occurrence: None)
  Receive Date: 20060410
  Receipt Date: 20060327
  Transmission Date: 20061013
  Serious: Yes (Other)
  Sender: FDA-Public Use
  Company Number: 2006031676

PATIENT
  Sex: Male
  Weight: 95.2554 kg

DRUGS (4)
  1. VIAGRA [Suspect]
     Indication: ERECTILE DYSFUNCTION
     Dosage: (50 MG)
  2. CENTRUM SILVER (ASCORBIC ACID, CALCIUM, MINERALS NOS, RETINOL, TOCOPHE [Concomitant]
  3. ASPIRIN [Concomitant]
  4. COD-LIVER OIL (COD-LIVER OIL) [Concomitant]

REACTIONS (6)
  - BIOPSY TESTES [None]
  - DRUG INEFFECTIVE [None]
  - ERECTILE DYSFUNCTION [None]
  - HYPERTENSION [None]
  - IATROGENIC INJURY [None]
  - SEXUAL DYSFUNCTION [None]
